FAERS Safety Report 19600314 (Version 4)
Quarter: 2021Q4

REPORT INFORMATION
  Report Type: Spontaneous
  Country: US (occurrence: US)
  Receive Date: 20210723
  Receipt Date: 20211014
  Transmission Date: 20220303
  Serious: Yes (Other)
  Sender: FDA-Public Use
  Company Number: US-GLAXOSMITHKLINE-US2021154285

PATIENT
  Sex: Female
  Weight: 83.45 kg

DRUGS (2)
  1. ZEJULA [Suspect]
     Active Substance: NIRAPARIB
     Indication: Malignant peritoneal neoplasm
     Dosage: 200 MG, QD
     Route: 048
     Dates: start: 202106
  2. ZEJULA [Suspect]
     Active Substance: NIRAPARIB
     Dosage: 200 MG,QD
     Route: 048
     Dates: start: 20210625

REACTIONS (7)
  - Chronic kidney disease [Unknown]
  - Blood magnesium decreased [Unknown]
  - Laboratory test abnormal [Unknown]
  - Constipation [Recovering/Resolving]
  - Blood potassium decreased [Unknown]
  - Insomnia [Unknown]
  - Fatigue [Recovered/Resolved with Sequelae]
